FAERS Safety Report 7393015-5 (Version None)
Quarter: 2011Q2

REPORT INFORMATION
  Report Type: 
  Country: None (occurrence: None)
  Receive Date: 20110404
  Receipt Date: 20110322
  Transmission Date: 20111010
  Serious: Yes (Death)
  Sender: FDA-Public Use
  Company Number: FR-CELGENEUS-056-C5013-11031873

PATIENT
  Sex: Female
  Weight: 70 kg

DRUGS (7)
  1. MELPHALAN [Suspect]
     Dosage: 16 MILLIGRAM
     Route: 065
     Dates: start: 20110223
  2. PREDNISONE [Suspect]
     Indication: MULTIPLE MYELOMA
     Dosage: 155 MILLIGRAM
     Route: 065
     Dates: start: 20091015
  3. ANTITHROMBOTIC AGENTS [Concomitant]
     Route: 065
  4. THALIDOMIDE [Suspect]
     Indication: MULTIPLE MYELOMA
     Dosage: 100 MILLIGRAM
     Route: 048
     Dates: start: 20091015
  5. THALIDOMIDE [Suspect]
     Dosage: 100 MILLIGRAM
     Route: 048
     Dates: start: 20110223
  6. MELPHALAN [Suspect]
     Indication: MULTIPLE MYELOMA
     Dosage: 16 MILLIGRAM
     Route: 065
     Dates: start: 20091015
  7. PREDNISONE [Suspect]
     Dosage: 155 MILLIGRAM
     Route: 065
     Dates: start: 20110223

REACTIONS (1)
  - SUDDEN DEATH [None]
